FAERS Safety Report 6943830-4 (Version None)
Quarter: 2010Q3

REPORT INFORMATION
  Report Type: 
  Country: None (occurrence: None)
  Receive Date: 20100826
  Receipt Date: 20100823
  Transmission Date: 20110219
  Serious: Yes (Death)
  Sender: FDA-Public Use
  Company Number: A0863065A

PATIENT
  Age: 27 Year
  Sex: Male
  Weight: 60 kg

DRUGS (2)
  1. TYKERB [Suspect]
  2. NO CONCURRENT MEDICATION [Concomitant]

REACTIONS (3)
  - DEATH [None]
  - DIARRHOEA [None]
  - TESTICULAR CANCER METASTATIC [None]
